FAERS Safety Report 4987614-5 (Version None)
Quarter: 2006Q2

REPORT INFORMATION
  Report Type: 
  Country: None (occurrence: None)
  Receive Date: 20060428
  Receipt Date: 20060428
  Transmission Date: 20061013
  Serious: Yes (Hospitalization)
  Sender: FDA-Public Use
  Company Number: None

PATIENT
  Age: 51 Year
  Sex: Male
  Weight: 65.7716 kg

DRUGS (1)
  1. SYNVISC  THERE IS ONLY ONE GENZYME [Suspect]
     Indication: OSTEOARTHRITIS
     Dosage: ONLY ONE POSSIBLE 3 INJECTIONS
     Dates: start: 20060210, end: 20060224

REACTIONS (3)
  - DIFFICULTY IN WALKING [None]
  - JOINT SWELLING [None]
  - PAIN [None]
